FAERS Safety Report 5286962-1 (Version None)
Quarter: 2007Q2

REPORT INFORMATION
  Report Type: 
  Country: None (occurrence: None)
  Receive Date: 20070404
  Receipt Date: 20070327
  Transmission Date: 20071010
  Serious: Yes (Hospitalization, Other)
  Sender: FDA-Public Use
  Company Number: CH-ABBOTT-07P-151-0363229-00

PATIENT
  Age: 33 Year
  Sex: Female

DRUGS (5)
  1. KALETRA [Suspect]
     Indication: SYSTEMIC ANTIVIRAL TREATMENT
     Dosage: 133.3 / 33.3 MG, SIX DAILY
  2. LAMIVUDINE + ZIDOVUDINE [Suspect]
     Indication: SYSTEMIC ANTIVIRAL TREATMENT
     Dosage: 150 / 300 MG, TWICE DAILY
  3. METHADONE HCL [Concomitant]
     Indication: DRUG DEPENDENCE
     Dosage: NOT REPORTED
  4. AMITRIPTYLINE HCL [Concomitant]
     Indication: DRUG USE FOR UNKNOWN INDICATION
     Dosage: NOT REPORTED
  5. DIAZEPAM [Concomitant]
     Indication: DRUG USE FOR UNKNOWN INDICATION
     Dosage: NOT REPORTED

REACTIONS (1)
  - ACUTE MYOCARDIAL INFARCTION [None]
